FAERS Safety Report 5582968-3 (Version None)
Quarter: 2007Q4

REPORT INFORMATION
  Report Type: 
  Country: None (occurrence: None)
  Receive Date: 20071231
  Receipt Date: 20071218
  Transmission Date: 20080405
  Serious: Yes (Hospitalization)
  Sender: FDA-Public Use
  Company Number: TPG2007A00743

PATIENT
  Sex: Male

DRUGS (2)
  1. COMPETACT (PIOGLITAZONE HYDROCHLORIDE, METFORMIN HYDROCHLORIDE) [Suspect]
     Indication: DRUG USE FOR UNKNOWN INDICATION
     Dosage: 15 MG PIOGLITAZONE AND 850 MG METFORMIN PER ORAL
     Route: 048
  2. MARCUMAR [Concomitant]

REACTIONS (2)
  - BLADDER NEOPLASM [None]
  - HAEMATURIA [None]
